FAERS Safety Report 8945708 (Version 3)
Quarter: 2013Q1

REPORT INFORMATION
  Report Type: Report from Study
  Country: US (occurrence: US)
  Receive Date: 20121205
  Receipt Date: 20130114
  Transmission Date: 20140127
  Serious: Yes (Hospitalization)
  Sender: FDA-Public Use
  Company Number: US-AMGEN-USACT2012077380

PATIENT
  Age: 58 Year
  Sex: Male
  Weight: 86 kg

DRUGS (4)
  1. PANITUMUMAB [Suspect]
     Indication: NON-SMALL CELL LUNG CANCER
     Dosage: UNK
  2. CARBOPLATIN [Concomitant]
     Indication: NON-SMALL CELL LUNG CANCER
     Dosage: 420 MG, QWK
     Dates: start: 20121017
  3. TAXOL [Concomitant]
     Indication: NON-SMALL CELL LUNG CANCER
     Dosage: UNK UNK, QWK
     Dates: start: 20121017
  4. METOPROLOL [Concomitant]

REACTIONS (2)
  - Ileus [Recovered/Resolved]
  - Diarrhoea [Recovered/Resolved]
